FAERS Safety Report 24168150 (Version 2)
Quarter: 2024Q4

REPORT INFORMATION
  Report Type: Spontaneous
  Country: DE (occurrence: DE)
  Receive Date: 20240802
  Receipt Date: 20241029
  Transmission Date: 20250114
  Serious: Yes (Hospitalization)
  Sender: FRESENIUS KABI
  Company Number: DE-ROCHE-10000020966

PATIENT
  Age: 70 Year
  Sex: Male
  Weight: 70 kg

DRUGS (15)
  1. CARBOPLATIN [Suspect]
     Active Substance: CARBOPLATIN
     Indication: Small cell lung cancer extensive stage
     Dosage: ON 07/FEB/2024, RECEIVED MOST RECENT DOSE (455 MG) OF STUDY DRUG (CARBOPLATIN) PRIOR TO AE/SAE.?FOA-
     Route: 042
     Dates: start: 20231206
  2. IRINOTECAN [Suspect]
     Active Substance: IRINOTECAN
     Indication: Small cell lung cancer extensive stage
     Route: 065
     Dates: start: 20240618
  3. IRINOTECAN [Suspect]
     Active Substance: IRINOTECAN
     Route: 065
     Dates: start: 20240625
  4. ATEZOLIZUMAB [Suspect]
     Active Substance: ATEZOLIZUMAB
     Indication: Small cell lung cancer extensive stage
     Dosage: ON 15/MAY/2024, RECEIVED MOST RECENT DOSE (1200 MG) OF STUDY DRUG (ATEZOLIZUMAB) PRIOR TO AE/SAE.?FO
     Route: 041
     Dates: start: 20231206
  5. ETOPOSIDE [Suspect]
     Active Substance: ETOPOSIDE
     Indication: Small cell lung cancer extensive stage
     Dosage: ON 09/FEB/2024, RECEIVED MOST RECENT DOSE (195 MG) OF STUDY DRUG (ETOPOSIDE) PRIOR TO AE AND MOST RE
     Route: 042
     Dates: start: 20231206
  6. ASPIRIN [Concomitant]
     Active Substance: ASPIRIN
     Indication: Product used for unknown indication
     Dosage: ONGOING
     Dates: start: 2019
  7. CRESTOR [Concomitant]
     Active Substance: ROSUVASTATIN CALCIUM
     Indication: Product used for unknown indication
     Dosage: ONGOING
     Dates: start: 2019
  8. SPIRIVA [Concomitant]
     Active Substance: TIOTROPIUM BROMIDE MONOHYDRATE
     Indication: Chronic obstructive pulmonary disease
     Dosage: ONGOING
     Dates: start: 2019
  9. LORAZEPAM [Concomitant]
     Active Substance: LORAZEPAM
     Indication: Product used for unknown indication
     Dosage: ONGOING
     Dates: start: 20231109
  10. NALOXONE HYDROCHLORIDE\OXYCODONE HYDROCHLORIDE [Concomitant]
     Active Substance: NALOXONE HYDROCHLORIDE\OXYCODONE HYDROCHLORIDE
     Indication: Chest pain
     Dosage: ONGOING
     Dates: start: 20240601
  11. LEVOTHYROXINE [Concomitant]
     Active Substance: LEVOTHYROXINE
     Indication: Hypothyroidism
     Dosage: ONGOING
     Dates: start: 202112
  12. METAMIZOLE [Concomitant]
     Active Substance: METAMIZOLE
     Indication: Chest pain
     Dosage: ONGOING
     Dates: start: 20231111
  13. MOVICOL [Concomitant]
     Active Substance: POLYETHYLENE GLYCOL 3350\POTASSIUM CHLORIDE\SODIUM BICARBONATE\SODIUM CHLORIDE
     Indication: Constipation
     Dosage: ONGOING
     Dates: start: 20231229
  14. FRESUBIN 2 KCAL DRINK [Concomitant]
     Indication: Weight decreased
     Dosage: ONGOING
     Dates: start: 20231229
  15. LURBINECTEDIN [Concomitant]
     Active Substance: LURBINECTEDIN
     Indication: Neoplasm malignant
     Dates: start: 20240618

REACTIONS (1)
  - Colitis [Recovering/Resolving]

NARRATIVE: CASE EVENT DATE: 20240704
